FAERS Safety Report 23053430 (Version 1)
Quarter: 2023Q4

REPORT INFORMATION
  Report Type: Spontaneous
  Country: US (occurrence: US)
  Receive Date: 20231011
  Receipt Date: 20231011
  Transmission Date: 20240110
  Serious: Yes (Other)
  Sender: FDA-Public Use
  Company Number: US-drreddys-LIT/USA/23/0179312

PATIENT
  Age: 27 Year
  Sex: Female

DRUGS (4)
  1. MINOCYCLINE HYDROCHLORIDE [Suspect]
     Active Substance: MINOCYCLINE HYDROCHLORIDE
     Indication: Product used for unknown indication
  2. CYCLOSPORINE [Suspect]
     Active Substance: CYCLOSPORINE
     Indication: Aplastic anaemia
     Dosage: 225MG DAILY EQUATING TO 3.1 MG/KG
  3. DAPSONE [Suspect]
     Active Substance: DAPSONE
     Indication: Antifungal prophylaxis
     Dosage: 2 MISSED DOSES
  4. DAPSONE [Suspect]
     Active Substance: DAPSONE
     Dosage: RESTARTED ON DAPSONE AT SAME DOSE

REACTIONS (3)
  - Systemic lupus erythematosus [Recovered/Resolved]
  - Linear IgA disease [Recovered/Resolved]
  - Product use in unapproved indication [Unknown]
